FAERS Safety Report 6793478-X (Version None)
Quarter: 2010Q2

REPORT INFORMATION
  Report Type: 
  Country: None (occurrence: None)
  Receive Date: 20100624
  Receipt Date: 20100506
  Transmission Date: 20101027
  Serious: Yes (Death)
  Sender: FDA-Public Use
  Company Number: US-MYLANLABS-2010S1005892

PATIENT
  Age: 24 Year
  Sex: Male

DRUGS (5)
  1. HEROIN [Suspect]
  2. CLOZAPINE [Suspect]
     Indication: SCHIZOPHRENIA
     Route: 048
     Dates: start: 20070328
  3. CLOZAPINE [Suspect]
     Route: 048
     Dates: end: 20100123
  4. LEXAPRO [Concomitant]
  5. DEPAKOTE ER [Concomitant]

REACTIONS (1)
  - NARCOTIC INTOXICATION [None]
